FAERS Safety Report 24322145 (Version 1)
Quarter: 2024Q3

REPORT INFORMATION
  Report Type: Report from Study
  Country: US (occurrence: US)
  Receive Date: 20240916
  Receipt Date: 20240916
  Transmission Date: 20241017
  Serious: Yes (Other)
  Sender: SANOFI AVENTIS
  Company Number: US-SA-2024SA262107

PATIENT
  Age: 85 Year
  Sex: Female

DRUGS (38)
  1. ALEMTUZUMAB [Suspect]
     Active Substance: ALEMTUZUMAB
     Indication: T-cell prolymphocytic leukaemia
     Dosage: 3 MG, 1X
     Route: 042
     Dates: start: 20240819, end: 20240819
  2. ALEMTUZUMAB [Suspect]
     Active Substance: ALEMTUZUMAB
     Dosage: 10 MG, 1X
     Route: 042
     Dates: start: 20240820, end: 20240820
  3. ALEMTUZUMAB [Suspect]
     Active Substance: ALEMTUZUMAB
     Dosage: 30 MG, TIW
     Route: 042
     Dates: start: 20240821
  4. OXYCODONE [Suspect]
     Active Substance: OXYCODONE
     Indication: Pain
     Dosage: 5 MG, PRN, EVERY 4 HOURS AS NEEDED
     Route: 048
     Dates: start: 20240819, end: 20240821
  5. OXYCODONE [Suspect]
     Active Substance: OXYCODONE
     Dosage: 2.5 MG, PRN, EVERY 4 HOURS AS NEEDED
     Route: 048
     Dates: start: 20240819, end: 20240821
  6. DIPHENHYDRAMINE [Suspect]
     Active Substance: DIPHENHYDRAMINE
     Indication: Premedication
     Dosage: 50 MG, 1X
     Route: 048
     Dates: start: 20240819, end: 20240819
  7. DIPHENHYDRAMINE [Suspect]
     Active Substance: DIPHENHYDRAMINE
     Indication: Chills
     Dosage: 50 MG, 1X
     Route: 048
     Dates: start: 20240820, end: 20240820
  8. DIPHENHYDRAMINE [Suspect]
     Active Substance: DIPHENHYDRAMINE
     Indication: Hypotension
     Dosage: 25 MG, 1X (FOR CHILLS AND HYPOTENSION)
     Route: 042
     Dates: start: 20240820, end: 20240820
  9. DIPHENHYDRAMINE [Suspect]
     Active Substance: DIPHENHYDRAMINE
     Dosage: 50 MG, 1X
     Route: 048
     Dates: start: 20240821, end: 20240821
  10. DIPHENHYDRAMINE [Suspect]
     Active Substance: DIPHENHYDRAMINE
     Dosage: 25 MG, 1X
     Route: 048
     Dates: start: 20240823, end: 20240823
  11. ACETAMINOPHEN [Concomitant]
     Active Substance: ACETAMINOPHEN
     Indication: Premedication
     Dosage: 650 MG, 1X
     Route: 048
     Dates: start: 20240819, end: 20240819
  12. ACETAMINOPHEN [Concomitant]
     Active Substance: ACETAMINOPHEN
     Dosage: 650 MG, 1X
     Route: 048
     Dates: start: 20240820, end: 20240820
  13. ENOXAPARIN [Concomitant]
     Active Substance: ENOXAPARIN
     Indication: Thrombosis prophylaxis
     Dosage: 40 MG, QD
     Route: 058
     Dates: start: 20240819
  14. ENOXAPARIN [Concomitant]
     Active Substance: ENOXAPARIN
     Dosage: 30 MG, QD
     Route: 058
     Dates: start: 202408
  15. FAMOTIDINE [Concomitant]
     Active Substance: FAMOTIDINE
     Indication: Premedication
     Dosage: 20 MG, 1X
     Route: 042
     Dates: start: 20240819, end: 20240819
  16. FAMOTIDINE [Concomitant]
     Active Substance: FAMOTIDINE
     Indication: Chills
     Dosage: 20 MG, 1X
     Route: 042
     Dates: start: 20240820, end: 20240820
  17. FAMOTIDINE [Concomitant]
     Active Substance: FAMOTIDINE
     Dosage: 20 MG, 1X (FOR CHILLS)
     Route: 042
     Dates: start: 20240820, end: 20240820
  18. IBUPROFEN [Concomitant]
     Active Substance: IBUPROFEN
     Indication: Pain
     Dosage: 800 MG, PRN, TWICE A DAY AS NEEDED
     Route: 048
     Dates: start: 20240819
  19. INSULIN GLARGINE [Concomitant]
     Active Substance: INSULIN GLARGINE
     Indication: Diabetes mellitus
     Dosage: 20 U, QD, HOME MED, PRIOR TO START OF CAMPATH, EXACT DATE NOT AVAILABLE
     Route: 058
  20. METHYLPREDNISOLONE SODIUM SUCCINATE [Concomitant]
     Active Substance: METHYLPREDNISOLONE SODIUM SUCCINATE
     Indication: Premedication
     Dosage: 125 MG, 1X
     Route: 042
     Dates: start: 20240819, end: 20240819
  21. METHYLPREDNISOLONE SODIUM SUCCINATE [Concomitant]
     Active Substance: METHYLPREDNISOLONE SODIUM SUCCINATE
     Dosage: 125 MG, 1X
     Route: 042
     Dates: start: 20240820, end: 20240820
  22. MONTELUKAST [Concomitant]
     Active Substance: MONTELUKAST SODIUM
     Indication: Prophylaxis
     Dosage: 10 MG, QD
     Route: 048
     Dates: start: 20240819
  23. ONDANSETRON [Concomitant]
     Active Substance: ONDANSETRON
     Indication: Premedication
     Dosage: 8 MG, 1X
     Route: 042
     Dates: start: 20240819, end: 20240819
  24. ONDANSETRON [Concomitant]
     Active Substance: ONDANSETRON
     Dosage: 8 MG, 1X
     Route: 042
     Dates: start: 20240820, end: 20240820
  25. ACYCLOVIR [Concomitant]
     Active Substance: ACYCLOVIR
     Indication: Antiviral prophylaxis
     Dosage: 400 MG, BID
     Route: 048
     Dates: start: 20240819
  26. ALLOPURINOL [Concomitant]
     Active Substance: ALLOPURINOL
     Indication: Prophylaxis
     Dosage: 300 MG, HS (BED TIME), HOME MED, PRIOR TO START OF CAMPATH, EXACT DATE NOT AVAILABLE
     Route: 048
  27. ATOVAQUONE [Concomitant]
     Active Substance: ATOVAQUONE
     Indication: Antifungal prophylaxis
     Dosage: 1500 MG, QD
     Route: 048
     Dates: start: 20240819
  28. INSULIN ASPART [Concomitant]
     Active Substance: INSULIN ASPART
     Indication: Diabetes mellitus
     Dosage: SLIDING SCALE (2-8 UNITS), WITH MEALS AND AT BEDTIME, DURING HOSPITALIZATION
     Route: 058
     Dates: start: 20240819
  29. LEVOFLOXACIN [Concomitant]
     Active Substance: LEVOFLOXACIN
     Indication: Antibiotic prophylaxis
     Dosage: 500 MG, QD
     Route: 048
     Dates: start: 20240820
  30. MELATONIN [Concomitant]
     Active Substance: MELATONIN
     Indication: Insomnia
     Dosage: 6 MG, BEDTIME PRN DURING HOSPITALIZATION
     Route: 048
     Dates: start: 20240819
  31. OMEPRAZOLE [Concomitant]
     Active Substance: OMEPRAZOLE
     Indication: Gastrooesophageal reflux disease
     Dosage: 20 MG, BID, HOME MED, PRIOR TO START OF CAMPATH, EXACT DATE NOT AVAILABLE MED
     Route: 048
  32. SIMVASTATIN [Concomitant]
     Active Substance: SIMVASTATIN
     Indication: Dyslipidaemia
     Dosage: 40 MG, HS (BED TIME), HOME MED, PRIOR TO START OF CAMPATH, EXACT DATE NOT AVAILABLE MED
     Route: 048
  33. URSODIOL [Concomitant]
     Active Substance: URSODIOL
     Indication: Dyslipidaemia
     Dosage: 300 MG, BID, HOME MED, PRIOR TO START OF CAMPATH, EXACT DATE NOT AVAILABLE MED
     Route: 048
  34. ASPIRIN [Concomitant]
     Active Substance: ASPIRIN
     Indication: Antiplatelet therapy
     Dosage: 325 MG, 1X
     Route: 048
     Dates: start: 20240825, end: 20240825
  35. INSULIN NOS [Concomitant]
     Active Substance: INSULIN NOS
     Indication: Diabetes mellitus
     Dosage: 5 U, 1X
     Route: 058
     Dates: start: 20240823, end: 20240823
  36. POLYETHYLENE GLYCOL [Concomitant]
     Active Substance: POLYETHYLENE GLYCOL
     Indication: Constipation
     Dosage: 1 PACKET, QD
     Route: 048
     Dates: start: 20240825, end: 20240825
  37. POTASSIUM CHLORIDE [Concomitant]
     Active Substance: POTASSIUM CHLORIDE
     Indication: Hypokalaemia
     Dosage: 40 MEQ, 1X
     Route: 048
     Dates: start: 20240823, end: 20240823
  38. POTASSIUM CHLORIDE [Concomitant]
     Active Substance: POTASSIUM CHLORIDE
     Dosage: 40 MEQ, BID
     Route: 048
     Dates: start: 20240825, end: 20240825

REACTIONS (23)
  - Delirium [Unknown]
  - Hallucination, auditory [Unknown]
  - Dysarthria [Not Recovered/Not Resolved]
  - Speech disorder [Unknown]
  - Impulsive behaviour [Unknown]
  - Memory impairment [Unknown]
  - Blood uric acid increased [Unknown]
  - Mental status changes [Unknown]
  - Psychomotor hyperactivity [Unknown]
  - Disorientation [Unknown]
  - White blood cell count increased [Unknown]
  - Neutrophil count increased [Unknown]
  - Thinking abnormal [Unknown]
  - Confusional state [Unknown]
  - Malaise [Unknown]
  - Insomnia [Unknown]
  - Lymphocyte count decreased [Unknown]
  - Hypotension [Recovered/Resolved]
  - Fatigue [Unknown]
  - Blood pressure systolic increased [Unknown]
  - Pyrexia [Recovered/Resolved]
  - Chills [Unknown]
  - Product use in unapproved indication [Unknown]

NARRATIVE: CASE EVENT DATE: 20240819
